FAERS Safety Report 12329929 (Version 1)
Quarter: 2016Q2

REPORT INFORMATION
  Report Type: Report from Study
  Country: US (occurrence: US)
  Receive Date: 20160504
  Receipt Date: 20160504
  Transmission Date: 20160815
  Serious: Yes (Death)
  Sender: FDA-Public Use
  Company Number: US-ASTRAZENECA-2016SE46603

PATIENT
  Age: 66 Year
  Sex: Male

DRUGS (3)
  1. TAGRISSO [Suspect]
     Active Substance: OSIMERTINIB
     Indication: PRODUCT USED FOR UNKNOWN INDICATION
     Route: 048
     Dates: start: 20151205
  2. METOPROLOL. [Concomitant]
     Active Substance: METOPROLOL
  3. ELEQUITH [Concomitant]

REACTIONS (1)
  - Death [Fatal]
